FAERS Safety Report 9445848 (Version 2)
Quarter: 2013Q3

REPORT INFORMATION
  Report Type: Spontaneous
  Country: BR (occurrence: BR)
  Receive Date: 20130807
  Receipt Date: 20130822
  Transmission Date: 20140515
  Serious: Yes (Hospitalization, Other)
  Sender: FDA-Public Use
  Company Number: BR-PFIZER INC-2013226443

PATIENT
  Age: 67 Year
  Sex: Female

DRUGS (8)
  1. LIPITOR [Suspect]
     Indication: BLOOD PRESSURE INCREASED
     Dosage: 10 MG (ONE TABLET), 1X/DAY
     Route: 048
     Dates: start: 2003
  2. LIPITOR [Suspect]
     Indication: BLOOD CHOLESTEROL
  3. ALENDRONIC ACID [Suspect]
     Dosage: UNK
  4. BUCLOSAMIDE [Suspect]
     Dosage: UNK
  5. CARDIAZEM (DILTIAZEM HYDROCHLORIDE) [Concomitant]
     Dosage: 60 MG, UNK
     Dates: start: 2012
  6. MICARDIS [Concomitant]
     Dosage: 80 MG, UNK
     Dates: start: 2012
  7. SOMALGIN CARDIO [Concomitant]
     Dosage: STRENGTH 100 (UNITS NOT PROVIDED)
     Dates: start: 2012
  8. ADDERA D3 [Concomitant]
     Dosage: UNK
     Dates: start: 2012

REACTIONS (5)
  - Infarction [Unknown]
  - Renal haemorrhage [Unknown]
  - Nephrolithiasis [Unknown]
  - Osteoporosis [Unknown]
  - Off label use [Not Recovered/Not Resolved]
